FAERS Safety Report 9447392 (Version 1)
Quarter: 2013Q3

REPORT INFORMATION
  Report Type: Spontaneous
  Country: BR (occurrence: BR)
  Receive Date: 20130808
  Receipt Date: 20130808
  Transmission Date: 20140515
  Serious: Yes (Death, Hospitalization)
  Sender: FDA-Public Use
  Company Number: BR-PFIZER INC-2012090254

PATIENT
  Age: 36 Year
  Sex: Male
  Weight: 105 kg

DRUGS (5)
  1. SUTENT [Suspect]
     Indication: RENAL CELL CARCINOMA
     Dosage: 50 MG, ONCE DAILY, CYCLE (4 FOR 2)
     Route: 048
     Dates: start: 20120319
  2. DIPYRONE [Concomitant]
     Indication: PAIN
     Dosage: 1 G, AS NEEDED (IF PAIN)
  3. IBUPROFEN [Concomitant]
     Indication: PAIN
     Dosage: UNK, AS NEEDED (IF PAIN)
  4. PURAN T4 [Concomitant]
     Dosage: 200 MG, 1X/DAY
  5. MORPHINE [Concomitant]

REACTIONS (6)
  - Death [Fatal]
  - Intestinal perforation [Not Recovered/Not Resolved]
  - Hyperkeratosis [Not Recovered/Not Resolved]
  - Pain in extremity [Not Recovered/Not Resolved]
  - Myalgia [Unknown]
  - Rectal discharge [Not Recovered/Not Resolved]
